FAERS Safety Report 20409837 (Version 2)
Quarter: 2022Q1

REPORT INFORMATION
  Report Type: Spontaneous
  Country: TW (occurrence: TW)
  Receive Date: 20220201
  Receipt Date: 20220211
  Transmission Date: 20220423
  Serious: Yes (Other)
  Sender: FDA-Public Use
  Company Number: TW-ELI_LILLY_AND_COMPANY-TW202201010449

PATIENT
  Age: 65 Year
  Sex: Male

DRUGS (7)
  1. PEMETREXED [Suspect]
     Active Substance: PEMETREXED
     Indication: Lung adenocarcinoma stage IV
     Dosage: 500 MG, OTHER (ONCE EVERY 3 WEEKS)
     Route: 042
     Dates: start: 20190926, end: 20191129
  2. PEMETREXED [Suspect]
     Active Substance: PEMETREXED
     Dosage: 500 MG, CYCLICAL
     Route: 042
     Dates: start: 20191220, end: 20210904
  3. CISPLATIN [Suspect]
     Active Substance: CISPLATIN
     Indication: Lung adenocarcinoma stage IV
     Dosage: UNK UNK, CYCLICAL
     Route: 065
     Dates: start: 20190926, end: 20191129
  4. PEMBROLIZUMAB [Suspect]
     Active Substance: PEMBROLIZUMAB
     Indication: Lung adenocarcinoma stage IV
     Dosage: 100 MG, CYCLICAL
     Route: 065
     Dates: start: 20190926, end: 20191129
  5. PEMBROLIZUMAB [Suspect]
     Active Substance: PEMBROLIZUMAB
     Dosage: 100 MG, CYCLICAL
     Route: 065
     Dates: start: 20191220, end: 20210904
  6. FOLIC ACID [Concomitant]
     Active Substance: FOLIC ACID
     Indication: Product used for unknown indication
  7. CYANOCOBALAMIN [Concomitant]
     Active Substance: CYANOCOBALAMIN
     Indication: Product used for unknown indication

REACTIONS (3)
  - Lymphadenopathy [Unknown]
  - Malignant pleural effusion [Unknown]
  - Malignant neoplasm progression [Unknown]

NARRATIVE: CASE EVENT DATE: 20210922
